FAERS Safety Report 9219545 (Version 1)
Quarter: 2013Q1

REPORT INFORMATION
  Report Type: Spontaneous
  Country: US (occurrence: None)
  Receive Date: 20120828
  Receipt Date: 20120828
  Transmission Date: 20140127
  Serious: Yes (Life-Threatening)
  Sender: FDA-Public Use
  Company Number: 2011BH20394

PATIENT
  Age: 27 Year
  Sex: Female
  Weight: 64.86 kg

DRUGS (3)
  1. KIOVIG_LIQUID_10%_SOLUTION FOR INFUSION_VIAL, GLASS(IMMUNOGLOBULIN, NORMAL HUMAN)(**UN-MAPPED CODE**) [Suspect]
     Indication: IMMUNODEFICIENCY COMMON VARIABLE
     Dosage: 20 MG, 1 IN 4 D
     Route: 042
     Dates: start: 20110615, end: 20110615
  2. ALBUTEROL (UNKNOWN) [Concomitant]
  3. HUMALOG (INSULIN LISPRO) (UNKNOWN) [Concomitant]

REACTIONS (1)
  - Anaphylactic reaction [None]
